FAERS Safety Report 9915809 (Version 1)
Quarter: 2014Q1

REPORT INFORMATION
  Report Type: Spontaneous
  Country: US (occurrence: US)
  Receive Date: 20140221
  Receipt Date: 20140221
  Transmission Date: 20141002
  Serious: No
  Sender: FDA-Public Use
  Company Number: US-009507513-1402USA009658

PATIENT
  Age: 59 Year
  Sex: Male

DRUGS (7)
  1. INVANZ [Suspect]
     Indication: LUNG INFECTION
     Dosage: UNK
     Route: 042
     Dates: start: 20140124, end: 20140215
  2. FENTANYL [Concomitant]
  3. OXYCODONE [Concomitant]
  4. CYCLOBENZAPRINE HYDROCHLORIDE [Concomitant]
  5. OMEPRAZOLE [Concomitant]
  6. TRAZODONE HYDROCHLORIDE [Concomitant]
  7. CULTURELLE (LACTOBACILLUS RHAMNOSUS) [Concomitant]

REACTIONS (1)
  - Myalgia [Recovered/Resolved]
